FAERS Safety Report 25995276 (Version 1)
Quarter: 2025Q4

REPORT INFORMATION
  Report Type: Spontaneous
  Country: US (occurrence: None)
  Receive Date: 20251101
  Receipt Date: 20251101
  Transmission Date: 20260118
  Serious: No
  Sender: FDA-CTU
  Company Number: None

PATIENT
  Sex: Female

DRUGS (4)
  1. GAMMAGARD LIQUID [Suspect]
     Active Substance: HUMAN IMMUNOGLOBULIN G
     Indication: Chronic inflammatory demyelinating polyradiculoneuropathy
     Dosage: OTHER FREQUENCY : SEE EVENT??30  G GRAM(S) INTRAVENOUS
     Route: 042
  2. GAMMAGARD LIQUID [Suspect]
     Active Substance: HUMAN IMMUNOGLOBULIN G
     Indication: Chronic inflammatory demyelinating polyradiculoneuropathy
     Dosage: OTHER FREQUENCY : SEE EVENT??3 G GRAM(S) INTRAVENOUS?
     Route: 042
  3. OTEZLA [Concomitant]
     Active Substance: APREMILAST
  4. EPINEPHRINE INJ (1MLX10) [Concomitant]

REACTIONS (2)
  - Diarrhoea [None]
  - Rectal haemorrhage [None]
